FAERS Safety Report 20382353 (Version 1)
Quarter: 2022Q1

REPORT INFORMATION
  Report Type: Spontaneous
  Country: US (occurrence: US)
  Receive Date: 20220127
  Receipt Date: 20220127
  Transmission Date: 20220423
  Serious: No
  Sender: FDA-Public Use
  Company Number: US-PCCINC-2020-PEL-000763

PATIENT

DRUGS (7)
  1. GABLOFEN [Suspect]
     Active Substance: BACLOFEN
     Indication: Multiple sclerosis
     Dosage: INCREASED BY 10%
     Route: 037
  2. GABLOFEN [Suspect]
     Active Substance: BACLOFEN
     Indication: Muscle spasticity
     Dosage: INCREASED BY 10%
     Route: 037
  3. GABLOFEN [Suspect]
     Active Substance: BACLOFEN
     Dosage: INCREASED BY 10%
     Route: 037
  4. GABLOFEN [Suspect]
     Active Substance: BACLOFEN
     Dosage: INCREASED BY 15%
     Route: 037
  5. GABLOFEN [Suspect]
     Active Substance: BACLOFEN
     Dosage: 127.50 MICROGRAM PER DAY
     Route: 037
  6. GABLOFEN [Suspect]
     Active Substance: BACLOFEN
     Dosage: 145.78 MICROGRAM/DAY
     Route: 037
  7. GABLOFEN [Suspect]
     Active Substance: BACLOFEN
     Dosage: 89.94 MICROGRAM/DAY
     Route: 037

REACTIONS (4)
  - Drug ineffective [Recovered/Resolved]
  - Muscle spasticity [Recovered/Resolved]
  - Device kink [Recovered/Resolved]
  - Therapeutic response decreased [Recovered/Resolved]

NARRATIVE: CASE EVENT DATE: 20200401
